FAERS Safety Report 9815678 (Version 2)
Quarter: 2014Q1

REPORT INFORMATION
  Report Type: Other
  Country: GB (occurrence: GB)
  Receive Date: 20140114
  Receipt Date: 20140114
  Transmission Date: 20141002
  Serious: Yes (Hospitalization)
  Sender: FDA-Public Use
  Company Number: GB-SHIRE-ALL1-2013-08444

PATIENT
  Sex: Male

DRUGS (2)
  1. ELAPRASE [Suspect]
     Indication: MUCOPOLYSACCHARIDOSIS II
     Dosage: 12 MG, 1X/WEEK (ALTERNATING WITH 18 MG WEEKLY)
     Route: 041
  2. ELAPRASE [Suspect]
     Dosage: 18 MG, 1X/WEEK (ALTERNATING WITH 12 MG WEEKLY)
     Route: 041

REACTIONS (1)
  - Pain in extremity [Unknown]
